FAERS Safety Report 8436129-0 (Version None)
Quarter: 2012Q2

REPORT INFORMATION
  Report Type: 
  Country: None (occurrence: None)
  Receive Date: 20120614
  Receipt Date: 20120605
  Transmission Date: 20120825
  Serious: Yes (Hospitalization)
  Sender: FDA-Public Use
  Company Number: MX-ROCHE-1077372

PATIENT
  Sex: Male

DRUGS (1)
  1. XOLAIR [Suspect]
     Indication: RHINITIS
     Dosage: 150 MG
     Dates: start: 20100201

REACTIONS (2)
  - ARTHROPATHY [None]
  - GAIT DISTURBANCE [None]
